FAERS Safety Report 6615274-6 (Version None)
Quarter: 2010Q1

REPORT INFORMATION
  Report Type: 
  Country: None (occurrence: None)
  Receive Date: 20100301
  Receipt Date: 20100224
  Transmission Date: 20100710
  Serious: Yes (Death)
  Sender: FDA-Public Use
  Company Number: 2010SP007228

PATIENT
  Age: 75 Year
  Sex: Female

DRUGS (9)
  1. TEMODAL [Suspect]
     Indication: GLIOBLASTOMA MULTIFORME
     Dosage: 75 MG/M2
     Dates: start: 20050428, end: 20050603
  2. FORTECORTIN /00016001/ [Concomitant]
  3. SEROQUEL [Concomitant]
  4. TRENTAL [Concomitant]
  5. TEGRETOL [Concomitant]
  6. RAMIPRIL [Concomitant]
  7. DESLORATADINE [Concomitant]
  8. AGOPTON [Concomitant]
  9. NAVOBAN [Concomitant]

REACTIONS (1)
  - PANCYTOPENIA [None]
